FAERS Safety Report 4390471-1 (Version None)
Quarter: 2004Q2

REPORT INFORMATION
  Report Type: 
  Country: None (occurrence: None)
  Receive Date: 20040630
  Receipt Date: 20040617
  Transmission Date: 20050107
  Serious: Yes (Hospitalization)
  Sender: FDA-Public Use
  Company Number: PANC00304002028

PATIENT
  Age: 9 Month
  Sex: Male

DRUGS (4)
  1. CREON [Suspect]
     Indication: CYSTIC FIBROSIS
     Dosage: 1 DF DAILY PO
     Route: 048
     Dates: start: 20040516
  2. BECOTIDE (BECLOMETASONE DIPROPIONATE) [Concomitant]
  3. VENTOLIN [Concomitant]
  4. VIT K (VITAMIN K) [Concomitant]

REACTIONS (1)
  - PSEUDOMONAS INFECTION [None]
